FAERS Safety Report 9490509 (Version 1)
Quarter: 2013Q3

REPORT INFORMATION
  Report Type: Spontaneous
  Country: US (occurrence: None)
  Receive Date: 20130827
  Receipt Date: 20130827
  Transmission Date: 20140515
  Serious: Yes (Other)
  Sender: FDA-Public Use
  Company Number: None

PATIENT
  Sex: Male

DRUGS (10)
  1. LOVAZA [Suspect]
     Indication: BLOOD TRIGLYCERIDES INCREASED
     Dosage: 1 GAM 4 CAPS PER DAY TWICE DAILY MOUTH EVERY MORNING EVERY EVENING
     Route: 048
     Dates: start: 20130805, end: 20130806
  2. METFORMIN [Concomitant]
  3. GLUCATROL [Concomitant]
  4. NIASPAN [Concomitant]
  5. LANTUS(PEN) [Concomitant]
  6. CRESTOR [Concomitant]
  7. LOSARTAN [Concomitant]
  8. TRICOR [Concomitant]
  9. BABY ASPIRIN [Concomitant]
  10. FISH OIL [Concomitant]

REACTIONS (2)
  - Balance disorder [None]
  - Fall [None]
